FAERS Safety Report 5703691-8 (Version None)
Quarter: 2008Q2

REPORT INFORMATION
  Report Type: 
  Country: None (occurrence: None)
  Receive Date: 20080413
  Receipt Date: 20080407
  Transmission Date: 20081010
  Serious: Yes (Other)
  Sender: FDA-Public Use
  Company Number: PHMT2008CA00582

PATIENT
  Age: 63 Year
  Sex: Male

DRUGS (13)
  1. EFFEXOR [Concomitant]
     Route: 065
  2. UNIPHYL [Interacting]
     Dosage: 600 MG, QHS
     Route: 065
  3. TEGRETOL [Suspect]
     Indication: TRIGEMINAL NEURALGIA
     Dosage: 400 MG, TID
     Route: 048
     Dates: start: 19990101, end: 20080305
  4. LYRICA [Concomitant]
     Indication: PAIN
     Route: 065
  5. BACLOFEN [Concomitant]
     Indication: PAIN
     Route: 065
  6. ACCUPRIL [Concomitant]
  7. PLENDIL [Concomitant]
  8. CENTRUM FORTE [Concomitant]
  9. LIPITOR [Concomitant]
  10. DIABETA [Concomitant]
  11. SINGULAIR [Concomitant]
  12. GLUCOPHAGE [Concomitant]
  13. ACTOS [Concomitant]

REACTIONS (11)
  - CONFUSIONAL STATE [None]
  - DEPRESSED MOOD [None]
  - DIARRHOEA [None]
  - HEADACHE [None]
  - LETHARGY [None]
  - MALAISE [None]
  - NAUSEA [None]
  - PAIN [None]
  - PARAESTHESIA [None]
  - PERIPHERAL NERVE OPERATION [None]
  - SOCIAL AVOIDANT BEHAVIOUR [None]
